FAERS Safety Report 20514288 (Version 1)
Quarter: 2022Q1

REPORT INFORMATION
  Report Type: Spontaneous
  Country: DK (occurrence: DK)
  Receive Date: 20220224
  Receipt Date: 20220224
  Transmission Date: 20220423
  Serious: Yes (Other)
  Sender: FDA-Public Use
  Company Number: None

PATIENT
  Age: 8 Decade
  Sex: Male
  Weight: 100 kg

DRUGS (2)
  1. ERELZI [Suspect]
     Active Substance: ETANERCEPT-SZZS
     Indication: Rheumatoid arthritis
     Dosage: 50 MG, QW (STRENGHT: 50 MG)
     Route: 058
     Dates: start: 20210426, end: 20220203
  2. METEX [Concomitant]
     Indication: Rheumatoid arthritis
     Dosage: 15 MG, QW (STRENGHT: 15 MG)
     Route: 030
     Dates: start: 20101025

REACTIONS (1)
  - Bladder cancer [Recovered/Resolved]
